FAERS Safety Report 11872584 (Version 5)
Quarter: 2016Q2

REPORT INFORMATION
  Report Type: Report from Study
  Country: CA (occurrence: CA)
  Receive Date: 20151228
  Receipt Date: 20160601
  Transmission Date: 20160815
  Serious: Yes (Life-Threatening, Hospitalization, Disabling, Other)
  Sender: FDA-Public Use
  Company Number: CA-JNJFOC-20151220443

PATIENT
  Age: 55 Year
  Sex: Female
  Weight: 81.5 kg

DRUGS (3)
  1. REMICADE [Suspect]
     Active Substance: INFLIXIMAB
     Indication: RHEUMATOID ARTHRITIS
     Route: 042
     Dates: start: 20151210, end: 20160308
  2. METHOTREXATE [Suspect]
     Active Substance: METHOTREXATE
     Indication: PRODUCT USED FOR UNKNOWN INDICATION
     Route: 065
  3. REMICADE [Suspect]
     Active Substance: INFLIXIMAB
     Indication: RHEUMATOID ARTHRITIS
     Route: 042
     Dates: start: 20120116, end: 20151016

REACTIONS (10)
  - Mesenteric artery thrombosis [Recovered/Resolved with Sequelae]
  - Pneumatosis [Unknown]
  - Blood creatinine increased [Recovering/Resolving]
  - Sepsis [Unknown]
  - Myocardial infarction [Recovered/Resolved]
  - Intestinal infarction [Recovered/Resolved with Sequelae]
  - Pneumoperitoneum [Unknown]
  - Intestinal resection [Unknown]
  - Hypertension [Recovering/Resolving]
  - Haematuria [Recovering/Resolving]

NARRATIVE: CASE EVENT DATE: 201512
